FAERS Safety Report 4896077-X (Version None)
Quarter: 2005Q4

REPORT INFORMATION
  Report Type: 
  Country: None (occurrence: None)
  Receive Date: 20051220
  Receipt Date: 20050831
  Transmission Date: 20060501
  Serious: Yes (Other)
  Sender: FDA-Public Use
  Company Number: US148692

PATIENT
  Sex: Female

DRUGS (4)
  1. ENBREL [Suspect]
     Indication: RHEUMATOID ARTHRITIS
     Dosage: 50 MG, 1 IN 1
     Dates: start: 19990101, end: 20050601
  2. METHOTREXATE [Concomitant]
  3. CELECOXIB [Concomitant]
  4. HYDROXYCHLOROQUINE SULFATE [Concomitant]

REACTIONS (3)
  - CONDITION AGGRAVATED [None]
  - HAEMORRHAGIC STROKE [None]
  - RHEUMATOID ARTHRITIS [None]
